FAERS Safety Report 9607008 (Version 1)
Quarter: 2013Q4

REPORT INFORMATION
  Report Type: Spontaneous
  Country: US (occurrence: US)
  Receive Date: 20131009
  Receipt Date: 20131009
  Transmission Date: 20140711
  Serious: Yes (Death, Hospitalization)
  Sender: FDA-Public Use
  Company Number: 2013SP007076

PATIENT
  Age: 64 Year
  Sex: Male
  Weight: 85 kg

DRUGS (12)
  1. AMIODARONE [Suspect]
     Indication: PRODUCT USED FOR UNKNOWN INDICATION
  2. FLUOROURACIL [Suspect]
     Indication: ADENOCARCINOMA OF COLON
     Route: 040
     Dates: start: 20130507
  3. FLUOROURACIL [Suspect]
     Indication: ADENOCARCINOMA OF COLON
     Route: 042
     Dates: start: 20130507, end: 20130814
  4. ELOXATIN [Concomitant]
     Route: 042
     Dates: start: 20130507, end: 20130814
  5. CALCIUM FOLINATE [Concomitant]
     Route: 042
     Dates: start: 20130507, end: 20130814
  6. FUROSEMIDE [Concomitant]
  7. MORPHINE [Concomitant]
  8. NORTRIPTYLINE [Concomitant]
  9. PREGABALIN [Concomitant]
  10. RAMIPRIL [Concomitant]
  11. RIVAROXABAN [Concomitant]
  12. METFORMIN [Concomitant]

REACTIONS (5)
  - Pneumonitis [Fatal]
  - Dyspnoea [Recovered/Resolved]
  - Fatigue [Recovered/Resolved]
  - Pyrexia [Recovered/Resolved]
  - Hypoxia [Unknown]
